FAERS Safety Report 24013448 (Version 1)
Quarter: 2024Q2

REPORT INFORMATION
  Report Type: Spontaneous
  Country: US (occurrence: US)
  Receive Date: 20240626
  Receipt Date: 20240626
  Transmission Date: 20240716
  Serious: No
  Sender: FDA-Public Use
  Company Number: US-BAUSCHBL-2024BNL028763

PATIENT
  Age: 80 Year
  Sex: Male

DRUGS (4)
  1. LOTEMAX SM [Suspect]
     Active Substance: LOTEPREDNOL ETABONATE
     Indication: Cataract operation
     Dosage: 1 DROP IN EACH EYE 3 TIMES A DAY
     Route: 047
     Dates: start: 20240612
  2. PROLENSA [Suspect]
     Active Substance: BROMFENAC SODIUM
     Indication: Cataract operation
     Dosage: 1 DROP IN EACH EYE OF PROLENSA IN THE MORNING
     Route: 047
     Dates: start: 202406
  3. PATADAY [Concomitant]
     Active Substance: OLOPATADINE HYDROCHLORIDE
     Indication: Product used for unknown indication
     Route: 065
  4. CARBOXYMETHYLCELLULOSE [Concomitant]
     Active Substance: CARBOXYMETHYLCELLULOSE
     Indication: Product used for unknown indication
     Route: 065

REACTIONS (4)
  - Abnormal sensation in eye [Unknown]
  - Dry eye [Unknown]
  - Product container issue [Unknown]
  - Wrong dose [Unknown]

NARRATIVE: CASE EVENT DATE: 20240601
